FAERS Safety Report 12732563 (Version 1)
Quarter: 2016Q3

REPORT INFORMATION
  Report Type: Spontaneous
  Country: BR (occurrence: BR)
  Receive Date: 20160912
  Receipt Date: 20160912
  Transmission Date: 20161109
  Serious: Yes (Other)
  Sender: FDA-Public Use
  Company Number: BR-CMP PHARMA-2016CMP00010

PATIENT
  Age: 57 Year
  Sex: Female

DRUGS (1)
  1. AMANTADINE HYDROCHLORIDE. [Suspect]
     Active Substance: AMANTADINE HYDROCHLORIDE
     Indication: PARKINSON^S DISEASE
     Dosage: 200 MG, 1X/DAY
     Route: 065

REACTIONS (8)
  - Rash [None]
  - Skin lesion [None]
  - Peripheral swelling [None]
  - Thrombosis [Recovered/Resolved]
  - Neuropathy peripheral [Recovered/Resolved]
  - Rheumatoid arthritis [None]
  - Skin discolouration [None]
  - Burning sensation [None]
